FAERS Safety Report 10158266 (Version 1)
Quarter: 2014Q2

REPORT INFORMATION
  Report Type: Report from Study
  Country: US (occurrence: US)
  Receive Date: 20140507
  Receipt Date: 20140507
  Transmission Date: 20141212
  Serious: Yes (Other)
  Sender: FDA-Public Use
  Company Number: PHEH2014US009075

PATIENT
  Age: 52 Year
  Sex: Female
  Weight: 86.17 kg

DRUGS (1)
  1. GILENYA [Suspect]
     Indication: MULTIPLE SCLEROSIS
     Dosage: 0.5 MG, QD
     Route: 048
     Dates: start: 20111018

REACTIONS (12)
  - Blood glucose increased [Unknown]
  - Blood cholesterol increased [Unknown]
  - Dysphagia [Unknown]
  - Pollakiuria [Unknown]
  - Photophobia [Unknown]
  - Fatigue [Recovering/Resolving]
  - Visual impairment [Unknown]
  - Urinary incontinence [Unknown]
  - Paraesthesia [Unknown]
  - Hypoaesthesia [Unknown]
  - Headache [Unknown]
  - Blood pressure increased [Unknown]
